FAERS Safety Report 24640411 (Version 2)
Quarter: 2024Q4

REPORT INFORMATION
  Report Type: Spontaneous
  Country: KR (occurrence: KR)
  Receive Date: 20241120
  Receipt Date: 20241205
  Transmission Date: 20250115
  Serious: Yes (Hospitalization)
  Sender: CELLTRION
  Company Number: KR-CELLTRION INC.-2024KR028803

PATIENT

DRUGS (10)
  1. HERZUMA [Suspect]
     Active Substance: TRASTUZUMAB-PKRB
     Indication: Breast cancer metastatic
     Dosage: UNK
     Route: 042
     Dates: start: 20241114
  2. METRONIDAZOLE [Concomitant]
     Active Substance: METRONIDAZOLE
     Indication: Alanine aminotransferase increased
     Dosage: 100 MG, TID
     Route: 042
  3. METRONIDAZOLE [Concomitant]
     Active Substance: METRONIDAZOLE
     Indication: Aspartate aminotransferase increased
     Dosage: 500 MG, BID
     Route: 042
  4. CEFTRIAXONE SODIUM [Concomitant]
     Active Substance: CEFTRIAXONE SODIUM
     Indication: Alanine aminotransferase increased
     Dosage: 1 GRAM, QD
     Route: 042
  5. CEFTRIAXONE SODIUM [Concomitant]
     Active Substance: CEFTRIAXONE SODIUM
     Indication: Aspartate aminotransferase increased
     Dosage: 2 GRAM, QD
     Route: 042
  6. SODIUM CHLORIDE [Concomitant]
     Active Substance: SODIUM CHLORIDE
     Indication: Fluid replacement
     Dosage: 1 LITER CONTIUNOUS
     Route: 042
  7. GODEX [ADENINE HYDROCHLORIDE;BIFENDATE;CARNITINE OROTATE;CYANOCOBALAMI [Concomitant]
     Indication: Alanine aminotransferase increased
     Dosage: 1 CAPSULE, QD
     Route: 042
  8. GODEX [ADENINE HYDROCHLORIDE;BIFENDATE;CARNITINE OROTATE;CYANOCOBALAMI [Concomitant]
     Indication: Aspartate aminotransferase increased
  9. LIVIDI [Concomitant]
     Indication: Alanine aminotransferase increased
     Dosage: 1 MG, BID
     Route: 042
  10. LIVIDI [Concomitant]
     Indication: Aspartate aminotransferase increased

REACTIONS (2)
  - Alanine aminotransferase increased [Recovered/Resolved]
  - Aspartate aminotransferase increased [Recovered/Resolved]

NARRATIVE: CASE EVENT DATE: 20241115
